FAERS Safety Report 6194667-8 (Version None)
Quarter: 2009Q2

REPORT INFORMATION
  Report Type: 
  Country: None (occurrence: None)
  Receive Date: 20090519
  Receipt Date: 20090513
  Transmission Date: 20091009
  Serious: Yes (Death, Life-Threatening)
  Sender: FDA-Public Use
  Company Number: JP-BAYER-200911350BYL

PATIENT
  Age: 83 Year
  Sex: Female
  Weight: 49 kg

DRUGS (7)
  1. NEXAVAR [Suspect]
     Indication: RENAL CELL CARCINOMA STAGE III
     Dosage: UNIT DOSE: 200 MG
     Route: 048
     Dates: start: 20090406, end: 20090417
  2. BLOPRESS [Concomitant]
     Dosage: UNIT DOSE: 8 MG
     Route: 048
     Dates: start: 20090405, end: 20090503
  3. AMLODIPINE [Concomitant]
     Dosage: UNIT DOSE: 5 MG
     Route: 048
     Dates: start: 20090405, end: 20090503
  4. PURSENNID [Concomitant]
     Dosage: UNIT DOSE: 12 MG
     Route: 048
     Dates: start: 20090413, end: 20090417
  5. LENDORMIN D [Concomitant]
     Dosage: UNIT DOSE: 0.25 MG
     Route: 048
     Dates: start: 20090418, end: 20090418
  6. LENDORMIN D [Concomitant]
     Dosage: UNIT DOSE: 0.25 MG
     Route: 048
     Dates: start: 20090425, end: 20090429
  7. LENDORMIN D [Concomitant]
     Dosage: UNIT DOSE: 0.25 MG
     Route: 048
     Dates: start: 20090502, end: 20090502

REACTIONS (7)
  - BACK PAIN [None]
  - ERYTHEMA [None]
  - FATIGUE [None]
  - NEUTROPENIA [None]
  - PLEURAL EFFUSION [None]
  - RASH [None]
  - RENAL CELL CARCINOMA [None]
